FAERS Safety Report 10272416 (Version 1)
Quarter: 2014Q2

REPORT INFORMATION
  Report Type: Spontaneous
  Country: US (occurrence: None)
  Receive Date: 20140627
  Receipt Date: 20140627
  Transmission Date: 20141212
  Serious: No
  Sender: FDA-Public Use
  Company Number: None

PATIENT
  Age: 35 Year
  Sex: Male
  Weight: 73.2 kg

DRUGS (1)
  1. TRAMADOL [Suspect]
     Route: 048
     Dates: end: 20140422

REACTIONS (1)
  - Convulsion [None]
